FAERS Safety Report 4993902-9 (Version None)
Quarter: 2006Q2

REPORT INFORMATION
  Report Type: 
  Country: None (occurrence: None)
  Receive Date: 20060505
  Receipt Date: 20060209
  Transmission Date: 20061013
  Serious: Yes (Hospitalization, Other)
  Sender: FDA-Public Use
  Company Number: US-MERCK-0602USA03613

PATIENT
  Age: 66 Year
  Sex: Female
  Weight: 102 kg

DRUGS (19)
  1. VIOXX [Suspect]
     Indication: CARPAL TUNNEL SYNDROME
     Route: 048
     Dates: start: 19991001, end: 20040601
  2. VIOXX [Suspect]
     Route: 048
     Dates: start: 19991001, end: 20040601
  3. GLUCOPHAGE [Concomitant]
     Route: 048
  4. DILTIAZEM HYDROCHLORIDE [Concomitant]
     Route: 048
  5. MICRO-K [Concomitant]
     Route: 048
  6. LANOXIN [Concomitant]
     Route: 048
  7. SYNTHROID [Concomitant]
     Route: 048
  8. ATACAND [Concomitant]
     Route: 048
  9. NITROGLYCERIN [Concomitant]
     Route: 048
  10. ECOTRIN [Concomitant]
     Route: 065
     Dates: start: 20020101
  11. LIMBITROL TABLETS [Concomitant]
     Route: 065
  12. TYLENOL W/ CODEINE NO. 3 [Concomitant]
     Route: 065
     Dates: start: 20010101, end: 20050401
  13. CELEBREX [Concomitant]
     Route: 065
     Dates: start: 19990101, end: 20000101
  14. LOPRESSOR [Concomitant]
     Route: 065
     Dates: start: 20030401, end: 20050801
  15. LASIX [Concomitant]
     Route: 065
     Dates: start: 19950101
  16. ASPIRIN [Concomitant]
     Indication: PROPHYLAXIS
     Route: 065
     Dates: start: 20010101
  17. LIPITOR [Concomitant]
     Route: 065
     Dates: start: 20011001, end: 20050701
  18. AMITRIPTYLIN [Concomitant]
     Route: 065
     Dates: start: 20000901, end: 20050701
  19. GABAPENTIN [Concomitant]
     Route: 065
     Dates: start: 20041101, end: 20050401

REACTIONS (24)
  - ANAEMIA [None]
  - BRADYCARDIA [None]
  - CARDIAC DISORDER [None]
  - CARDIAC FAILURE CONGESTIVE [None]
  - CARPAL TUNNEL SYNDROME [None]
  - CEREBRAL INFARCTION [None]
  - CEREBROVASCULAR ACCIDENT [None]
  - CHEST PAIN [None]
  - CHRONIC OBSTRUCTIVE PULMONARY DISEASE [None]
  - COORDINATION ABNORMAL [None]
  - DELIRIUM [None]
  - DYSPNOEA [None]
  - HAEMATOCHEZIA [None]
  - HYPERKALAEMIA [None]
  - HYPOTENSION [None]
  - LOBAR PNEUMONIA [None]
  - MIGRAINE [None]
  - MYOCARDIAL INFARCTION [None]
  - PERICARDITIS [None]
  - RENAL DISORDER [None]
  - RENAL FAILURE ACUTE [None]
  - RESPIRATORY DISTRESS [None]
  - SLEEP APNOEA SYNDROME [None]
  - THERAPEUTIC AGENT TOXICITY [None]
